FAERS Safety Report 14818888 (Version 1)
Quarter: 2018Q2

REPORT INFORMATION
  Report Type: Spontaneous
  Country: SK (occurrence: SK)
  Receive Date: 20180427
  Receipt Date: 20180427
  Transmission Date: 20180711
  Serious: Yes (Hospitalization)
  Sender: FDA-Public Use
  Company Number: SK-TEVA-2018-SK-887033

PATIENT
  Age: 52 Year
  Sex: Female
  Weight: 49 kg

DRUGS (9)
  1. OMEPRAZOL [Concomitant]
     Active Substance: OMEPRAZOLE
     Route: 048
  2. URSOSAN [Concomitant]
     Active Substance: URSODIOL
     Route: 048
  3. CARVEDILOL. [Concomitant]
     Active Substance: CARVEDILOL
     Route: 048
  4. PREDNISON [Concomitant]
     Active Substance: PREDNISONE
     Route: 048
  5. FUROSEMIDE. [Suspect]
     Active Substance: FUROSEMIDE
     Indication: HEPATIC CIRRHOSIS
     Dosage: 80 MILLIGRAM DAILY; 40MG TWICE A DAY (1-1-0)
     Route: 048
     Dates: start: 201801
  6. VEROSPIRON [Suspect]
     Active Substance: SPIRONOLACTONE
     Indication: HEPATIC CIRRHOSIS
     Dosage: 150 MILLIGRAM DAILY;
     Route: 048
     Dates: start: 201801
  7. ACIDUM FOLICUM [Concomitant]
     Active Substance: FOLIC ACID
     Route: 048
  8. KANAVIT [Concomitant]
     Route: 048
  9. LAGOSA [Concomitant]
     Route: 048

REACTIONS (2)
  - Hyperkalaemia [Recovered/Resolved]
  - Hyponatraemia [Recovered/Resolved]

NARRATIVE: CASE EVENT DATE: 20180206
